FAERS Safety Report 8447852-6 (Version None)
Quarter: 2012Q2

REPORT INFORMATION
  Report Type: 
  Country: None (occurrence: None)
  Receive Date: 20120612
  Receipt Date: 20120531
  Transmission Date: 20120825
  Serious: No
  Sender: FDA-Public Use
  Company Number: ADR-2012-00766

PATIENT
  Sex: Female

DRUGS (1)
  1. LIORESAL [Suspect]
     Indication: MUSCLE SPASTICITY
     Dosage: 2000MCG

REACTIONS (8)
  - MALAISE [None]
  - DECUBITUS ULCER [None]
  - MUSCLE SPASMS [None]
  - DISCOMFORT [None]
  - INFECTION [None]
  - STREPTOCOCCUS TEST POSITIVE [None]
  - CONDITION AGGRAVATED [None]
  - MUSCLE SPASTICITY [None]
